FAERS Safety Report 7014981-3 (Version None)
Quarter: 2010Q3

REPORT INFORMATION
  Report Type: 
  Country: None (occurrence: None)
  Receive Date: 20100927
  Receipt Date: 20090909
  Transmission Date: 20110219
  Serious: No
  Sender: FDA-Public Use
  Company Number: US-ASTRAZENECA-2009SE12282

PATIENT
  Age: 56 Year
  Sex: Female
  Weight: 111.1 kg

DRUGS (4)
  1. ARIMIDEX [Suspect]
     Indication: BREAST CANCER
     Dosage: DAILY
     Route: 048
     Dates: start: 20090831
  2. TENORMIN [Concomitant]
     Indication: BLOOD PRESSURE
  3. FENOFERIN [Concomitant]
     Indication: MULTIPLE ALLERGIES
  4. HECEPTIN [Concomitant]

REACTIONS (4)
  - ABDOMINAL DISCOMFORT [None]
  - CHEST DISCOMFORT [None]
  - CONSTIPATION [None]
  - PALPITATIONS [None]
